FAERS Safety Report 24138624 (Version 2)
Quarter: 2024Q3

REPORT INFORMATION
  Report Type: Spontaneous
  Country: US (occurrence: US)
  Receive Date: 20240725
  Receipt Date: 20240912
  Transmission Date: 20241017
  Serious: Yes (Hospitalization)
  Sender: IOVANCE BIOTHERAPEUTICS
  Company Number: US-IOVANCE BIOTHERAPEUTICS, INC-2024IOV000044

PATIENT

DRUGS (7)
  1. AMTAGVI [Suspect]
     Active Substance: LIFILEUCEL
     Indication: Metastatic malignant melanoma
     Dosage: UNK
     Route: 042
     Dates: start: 20240617, end: 20240617
  2. ALDESLEUKIN [Suspect]
     Active Substance: ALDESLEUKIN
     Indication: Metastatic malignant melanoma
     Dosage: UNK
     Route: 042
     Dates: start: 202406, end: 202406
  3. CYCLOPHOSPHAMIDE [Concomitant]
     Active Substance: CYCLOPHOSPHAMIDE
     Indication: Metastatic malignant melanoma
     Dosage: UNK
     Route: 042
     Dates: start: 20240612, end: 20240616
  4. FLUDARABINE [Concomitant]
     Active Substance: FLUDARABINE PHOSPHATE
     Indication: Metastatic malignant melanoma
     Dosage: UNK
     Route: 042
     Dates: start: 20240612, end: 20240616
  5. LIPITOR [Concomitant]
     Active Substance: ATORVASTATIN CALCIUM
     Indication: Hypercholesterolaemia
     Dosage: 40 MILLIGRAM, QD
     Route: 048
  6. PROSCAR [Concomitant]
     Active Substance: FINASTERIDE
     Indication: Prostatomegaly
     Dosage: 5 MILLIGRAM, QD
     Route: 048
  7. SYNTHROID [Concomitant]
     Active Substance: LEVOTHYROXINE SODIUM
     Indication: Hypothyroidism
     Dosage: 150 MICROGRAM, QD
     Route: 048

REACTIONS (5)
  - Cardiac failure [Unknown]
  - Ejection fraction decreased [Unknown]
  - Orthostatic hypotension [Unknown]
  - Pancytopenia [Unknown]
  - Haemorrhage [Unknown]

NARRATIVE: CASE EVENT DATE: 20240701
